FAERS Safety Report 8917697 (Version 2)
Quarter: 2012Q4

REPORT INFORMATION
  Report Type: 
  Country: US (occurrence: US)
  Receive Date: 20121119
  Receipt Date: 20121126
  Transmission Date: 20130627
  Serious: No
  Sender: FDA-Public Use
  Company Number: US-009507513-1211USA005425

PATIENT
  Sex: Male
  Weight: 111.11 kg

DRUGS (2)
  1. CLARITIN LIQUIGELS [Suspect]
     Indication: SINUS DISORDER
     Dosage: 10 mg, Once
     Route: 048
     Dates: start: 20120829, end: 20120829
  2. CLARITIN LIQUIGELS [Suspect]
     Indication: MEDICAL OBSERVATION

REACTIONS (2)
  - Rash macular [Not Recovered/Not Resolved]
  - Rash [Recovered/Resolved]
